FAERS Safety Report 23713934 (Version 1)
Quarter: 2024Q2

REPORT INFORMATION
  Report Type: Spontaneous
  Country: FR (occurrence: FR)
  Receive Date: 20240405
  Receipt Date: 20240405
  Transmission Date: 20240716
  Serious: Yes (Hospitalization)
  Sender: FDA-Public Use
  Company Number: None

PATIENT
  Age: 68 Year
  Sex: Male
  Weight: 82 kg

DRUGS (3)
  1. ALIMTA [Suspect]
     Active Substance: PEMETREXED DISODIUM
     Indication: Non-small cell lung cancer
     Dosage: 987.5 MG, OTHER (TOTAL)
     Route: 042
     Dates: start: 20240201, end: 20240201
  2. OPDIVO [Suspect]
     Active Substance: NIVOLUMAB
     Indication: Non-small cell lung cancer
     Dosage: 360 MG, OTHER (TOTAL)
     Route: 042
     Dates: start: 20240201, end: 20240201
  3. CARBOPLATIN [Suspect]
     Active Substance: CARBOPLATIN
     Indication: Non-small cell lung cancer
     Dosage: 645 MG, OTHER (TOTAL)
     Route: 042
     Dates: start: 20240201, end: 20240201

REACTIONS (11)
  - Oesophagitis ulcerative [Recovered/Resolved]
  - Diarrhoea [Recovered/Resolved]
  - Large intestine infection [Recovered/Resolved]
  - Acute kidney injury [Recovered/Resolved]
  - Agranulocytosis [Recovered/Resolved]
  - Pyrexia [Recovered/Resolved]
  - Rash [Recovered/Resolved]
  - Thrombocytopenia [Recovering/Resolving]
  - Asthenia [Recovered/Resolved]
  - Nausea [Recovered/Resolved]
  - Malaise [Recovered/Resolved]

NARRATIVE: CASE EVENT DATE: 20240202
